FAERS Safety Report 24020001 (Version 1)
Quarter: 2024Q2

REPORT INFORMATION
  Report Type: Spontaneous
  Country: CA (occurrence: CA)
  Receive Date: 20240627
  Receipt Date: 20240627
  Transmission Date: 20240716
  Serious: Yes (Other)
  Sender: FDA-Public Use
  Company Number: CA-NOVOPROD-1241965

PATIENT
  Age: 59 Year
  Sex: Male
  Weight: 97 kg

DRUGS (2)
  1. OZEMPIC [Suspect]
     Active Substance: SEMAGLUTIDE
     Indication: Product used for unknown indication
     Dosage: UNK
  2. INFLECTRA [Suspect]
     Active Substance: INFLIXIMAB-DYYB
     Indication: Colitis ulcerative
     Dosage: UNK

REACTIONS (6)
  - Nephrolithiasis [Unknown]
  - Faeces soft [Unknown]
  - Condition aggravated [Unknown]
  - Chromaturia [Unknown]
  - COVID-19 [Unknown]
  - Therapeutic product effect incomplete [Unknown]
